FAERS Safety Report 7303838-6 (Version None)
Quarter: 2011Q1

REPORT INFORMATION
  Report Type: 
  Country: None (occurrence: None)
  Receive Date: 20110221
  Receipt Date: 20110210
  Transmission Date: 20110831
  Serious: Yes (Congenital Anomaly, Other)
  Sender: FDA-Public Use
  Company Number: A0884906A

PATIENT
  Sex: Female
  Weight: 2.4 kg

DRUGS (4)
  1. PREZISTA [Suspect]
     Indication: ANTIVIRAL TREATMENT
     Dosage: 1200MG PER DAY
     Route: 064
     Dates: start: 20100218
  2. RETROVIR [Concomitant]
     Indication: ANTIVIRAL TREATMENT
     Route: 064
     Dates: start: 20100603, end: 20100603
  3. COMBIVIR [Suspect]
     Indication: ANTIVIRAL TREATMENT
     Dosage: 200MG PER DAY
     Route: 064
     Dates: start: 20100112, end: 20100603
  4. NORVIR [Suspect]
     Indication: ANTIVIRAL TREATMENT
     Dosage: 200MG PER DAY
     Route: 064
     Dates: start: 20100218

REACTIONS (4)
  - FOETAL GROWTH RESTRICTION [None]
  - DRUG EXPOSURE DURING PREGNANCY [None]
  - ULTRASOUND SCAN ABNORMAL [None]
  - PREMATURE BABY [None]
